FAERS Safety Report 11252981 (Version 1)
Quarter: 2015Q3

REPORT INFORMATION
  Report Type: Report from Study
  Country: UY (occurrence: UY)
  Receive Date: 20150708
  Receipt Date: 20150708
  Transmission Date: 20151125
  Serious: Yes (Hospitalization)
  Sender: FDA-Public Use
  Company Number: UY-ABBVIE-15P-168-1421606-00

PATIENT
  Age: 76 Year
  Sex: Male

DRUGS (1)
  1. ZEMPLAR [Suspect]
     Active Substance: PARICALCITOL
     Indication: HYPERPARATHYROIDISM SECONDARY
     Route: 042
     Dates: start: 20141015, end: 201503

REACTIONS (2)
  - Tachyarrhythmia [Recovered/Resolved]
  - Hyperphosphataemia [Not Recovered/Not Resolved]

NARRATIVE: CASE EVENT DATE: 201503
